FAERS Safety Report 9145413 (Version 1)
Quarter: 2013Q1

REPORT INFORMATION
  Report Type: Spontaneous
  Country: US (occurrence: None)
  Receive Date: 20130226
  Receipt Date: 20130226
  Transmission Date: 20140127
  Serious: No
  Sender: FDA-Public Use
  Company Number: None

PATIENT
  Sex: Female

DRUGS (1)
  1. ENBREL 50 MG AMGEN [Suspect]
     Indication: PSORIATIC ARTHROPATHY
     Dosage: 50 MG QW SQ
     Route: 058
     Dates: start: 20120726

REACTIONS (5)
  - Breast tenderness [None]
  - Breast pain [None]
  - Nipple pain [None]
  - Nipple pain [None]
  - Food craving [None]
